FAERS Safety Report 13896933 (Version 1)
Quarter: 2017Q3

REPORT INFORMATION
  Report Type: Spontaneous
  Country: US (occurrence: US)
  Receive Date: 20170822
  Receipt Date: 20170822
  Transmission Date: 20171127
  Serious: Yes (Hospitalization, Other)
  Sender: FDA-Public Use
  Company Number: None

PATIENT
  Age: 57 Year
  Sex: Female
  Weight: 75.6 kg

DRUGS (13)
  1. ALENDRONATE [Suspect]
     Active Substance: ALENDRONATE SODIUM
     Indication: PELVIC FRACTURE
     Dosage: ?          QUANTITY:12 TABLET(S);OTHER FREQUENCY:1 TIME PER WEEK;?ORAL
     Route: 048
     Dates: start: 20170419, end: 20170712
  2. ZYRTEC [Concomitant]
     Active Substance: CETIRIZINE HYDROCHLORIDE
  3. VITAMIN B COMPLEX [Concomitant]
     Active Substance: CYANOCOBALAMIN\DEXPANTHENOL\NIACINAMIDE\PYRIDOXINE HYDROCHLORIDE\RIBOFLAVIN 5^-PHOSPHATE SODIUM\THIAMINE HYDROCHLORIDE\VITAMIN B COMPLEX
  4. PERCOCET [Concomitant]
     Active Substance: ACETAMINOPHEN\OXYCODONE HYDROCHLORIDE
  5. PESSARY [Concomitant]
  6. LIDOCAINE. [Concomitant]
     Active Substance: LIDOCAINE
  7. FLONASE [Concomitant]
     Active Substance: FLUTICASONE PROPIONATE
  8. VITAMIN B12 [Concomitant]
     Active Substance: CYANOCOBALAMIN
  9. BIOFREEZE [Concomitant]
     Active Substance: MENTHOL
  10. VOLTAREN [Concomitant]
     Active Substance: DICLOFENAC SODIUM
  11. CALCIUM + VITAMIN D [Concomitant]
     Active Substance: CALCIUM\VITAMIN D
  12. ALENDRONATE [Suspect]
     Active Substance: ALENDRONATE SODIUM
     Indication: OSTEOPENIA
     Dosage: ?          QUANTITY:12 TABLET(S);OTHER FREQUENCY:1 TIME PER WEEK;?ORAL
     Route: 048
     Dates: start: 20170419, end: 20170712
  13. ALENDRONATE [Suspect]
     Active Substance: ALENDRONATE SODIUM
     Indication: STRESS FRACTURE
     Dosage: ?          QUANTITY:12 TABLET(S);OTHER FREQUENCY:1 TIME PER WEEK;?ORAL
     Route: 048
     Dates: start: 20170419, end: 20170712

REACTIONS (7)
  - Arthralgia [None]
  - Pain in extremity [None]
  - Chest pain [None]
  - Joint swelling [None]
  - Dyspnoea [None]
  - Peripheral swelling [None]
  - Groin pain [None]
